FAERS Safety Report 18428461 (Version 2)
Quarter: 2020Q4

REPORT INFORMATION
  Report Type: Spontaneous
  Country: JP (occurrence: JP)
  Receive Date: 20201026
  Receipt Date: 20201102
  Transmission Date: 20210114
  Serious: Yes (Other)
  Sender: FDA-Public Use
  Company Number: JP-OTSUKA-2018_013522

PATIENT
  Age: 69 Year
  Sex: Male

DRUGS (2)
  1. ABILIFY [Suspect]
     Active Substance: ARIPIPRAZOLE
     Dosage: 0.5 MG, DAILY DOSE
     Route: 065
  2. ABILIFY [Suspect]
     Active Substance: ARIPIPRAZOLE
     Indication: ORAL DISCOMFORT
     Dosage: 3 MG, DAILY DOSE
     Route: 065

REACTIONS (2)
  - Dementia with Lewy bodies [Unknown]
  - Product use in unapproved indication [Unknown]
